FAERS Safety Report 13673711 (Version 2)
Quarter: 2017Q3

REPORT INFORMATION
  Report Type: Spontaneous
  Country: JP (occurrence: JP)
  Receive Date: 20170621
  Receipt Date: 20170705
  Transmission Date: 20171127
  Serious: Yes (Hospitalization, Other)
  Sender: FDA-Public Use
  Company Number: JP-ROCHE-1952385

PATIENT
  Age: 47 Year
  Sex: Female

DRUGS (9)
  1. PREDONINE [Suspect]
     Active Substance: PREDNISOLONE
     Indication: PROPHYLAXIS AGAINST TRANSPLANT REJECTION
     Route: 048
     Dates: start: 20040830
  2. RITUXAN [Suspect]
     Active Substance: RITUXIMAB
     Indication: KIDNEY TRANSPLANT REJECTION
     Route: 041
     Dates: start: 20040911, end: 20040911
  3. RITUXAN [Suspect]
     Active Substance: RITUXIMAB
     Indication: KIDNEY TRANSPLANT REJECTION
     Route: 041
     Dates: start: 20040914, end: 20040914
  4. SIMULECT [Suspect]
     Active Substance: BASILIXIMAB
     Indication: PROPHYLAXIS AGAINST TRANSPLANT REJECTION
     Route: 042
     Dates: start: 20040908, end: 20040908
  5. CELLCEPT [Suspect]
     Active Substance: MYCOPHENOLATE MOFETIL\MYCOPHENOLATE MOFETIL HYDROCHLORIDE
     Indication: PROPHYLAXIS AGAINST TRANSPLANT REJECTION
     Route: 048
     Dates: start: 20040828, end: 20050119
  6. METHYL PREDNISOLONE SODIUM SUCCINATE [Suspect]
     Active Substance: METHYLPREDNISOLONE SODIUM SUCCINATE
     Indication: PRODUCT USED FOR UNKNOWN INDICATION
     Dosage: UNCERTAINTY
     Route: 065
  7. SIMULECT [Suspect]
     Active Substance: BASILIXIMAB
     Indication: PROPHYLAXIS AGAINST TRANSPLANT REJECTION
     Route: 042
     Dates: start: 20040904, end: 20040908
  8. CELLCEPT [Suspect]
     Active Substance: MYCOPHENOLATE MOFETIL\MYCOPHENOLATE MOFETIL HYDROCHLORIDE
     Indication: PROPHYLAXIS AGAINST TRANSPLANT REJECTION
     Dosage: UNCERTAINTY
     Route: 048
     Dates: start: 2005
  9. PROGRAF [Suspect]
     Active Substance: TACROLIMUS\TACROLIMUS ANHYDROUS
     Indication: PROPHYLAXIS AGAINST TRANSPLANT REJECTION
     Route: 048
     Dates: start: 20040830

REACTIONS (4)
  - Cytomegalovirus infection [Recovered/Resolved]
  - Myeloid maturation arrest [Recovered/Resolved]
  - Hypogammaglobulinaemia [Recovered/Resolved]
  - Agranulocytosis [Recovered/Resolved]

NARRATIVE: CASE EVENT DATE: 20040921
